FAERS Safety Report 25824761 (Version 2)
Quarter: 2025Q4

REPORT INFORMATION
  Report Type: Report from Study
  Country: US (occurrence: US)
  Receive Date: 20250919
  Receipt Date: 20251017
  Transmission Date: 20260118
  Serious: Yes (Other)
  Sender: ALNYLAM PHARMACEUTICALS
  Company Number: US-ALNYLAM PHARMACEUTICALS, INC.-ALN-2025-005650

PATIENT
  Weight: 180 kg

DRUGS (7)
  1. AMVUTTRA [Suspect]
     Active Substance: VUTRISIRAN
     Indication: Hereditary neuropathic amyloidosis
     Dosage: 25 MILLIGRAM, Q3M (25 MG/0.5 ML PFS)
  2. ALLOPURINOL [Concomitant]
     Active Substance: ALLOPURINOL
     Indication: Product used for unknown indication
     Dosage: 100 MILLIGRAM
     Route: 065
  3. COLCHICINE 0.6 MG CAPSULE [Concomitant]
     Indication: Product used for unknown indication
     Dosage: 0.6 MILLIGRAM
     Route: 065
  4. VYNDAMAX 61 MG CAPSULE [Concomitant]
     Indication: Product used for unknown indication
     Dosage: 61 MILLIGRAM
     Route: 065
  5. TORSEMIDE 100 MG TABLET [Concomitant]
     Indication: Product used for unknown indication
     Dosage: 100 MILLIGRAM
     Route: 065
  6. SIMVASTATIN 40 MG TABLET [Concomitant]
     Indication: Product used for unknown indication
     Dosage: 40 MILLIGRAM
     Route: 065
  7. GABAPENTIN [Concomitant]
     Active Substance: GABAPENTIN
     Indication: Product used for unknown indication
     Dosage: 100 MILLIGRAM
     Route: 065

REACTIONS (8)
  - Hypertrophic cardiomyopathy [Unknown]
  - Gout [Unknown]
  - Blood cholesterol increased [Unknown]
  - Protein total abnormal [Unknown]
  - Hypoaesthesia [Unknown]
  - Heart rate decreased [Unknown]
  - Dry eye [Unknown]
  - Peripheral swelling [Unknown]
